FAERS Safety Report 5193912-5 (Version None)
Quarter: 2006Q4

REPORT INFORMATION
  Report Type: 
  Country: None (occurrence: None)
  Receive Date: 20061222
  Receipt Date: 20061109
  Transmission Date: 20070319
  Serious: Yes (Hospitalization, Other)
  Sender: FDA-Public Use
  Company Number: 2006142185

PATIENT
  Age: 44 Year
  Sex: Male

DRUGS (2)
  1. CELEBREX [Suspect]
     Indication: SPINAL CORD INJURY
     Dosage: 200 MG, 2 TIMES PER DAY OR WHEN IN PAIN)
     Dates: start: 20010101
  2. BEXTRA [Suspect]
     Indication: SPINAL CORD INJURY
     Dosage: 20MG OR 40MG (20 MG, FREQUENCY: 1-2X)
     Dates: start: 20010101

REACTIONS (4)
  - CARDIOVASCULAR DISORDER [None]
  - CEREBROVASCULAR ACCIDENT [None]
  - DEPRESSION [None]
  - MYOCARDIAL INFARCTION [None]
